FAERS Safety Report 12001479 (Version 3)
Quarter: 2016Q2

REPORT INFORMATION
  Report Type: Spontaneous
  Country: US (occurrence: US)
  Receive Date: 20160204
  Receipt Date: 20160411
  Transmission Date: 20160815
  Serious: No
  Sender: FDA-Public Use
  Company Number: US-TOLMAR INC.-1047318

PATIENT
  Sex: Female

DRUGS (1)
  1. ERYTHROMYCIN AND BENZOYL PEROXIDE TOPICAL GEL USP, 3%;5% [Suspect]
     Active Substance: BENZOYL PEROXIDE\ERYTHROMYCIN
     Indication: PAIN
     Route: 061
     Dates: start: 201511

REACTIONS (2)
  - Product physical consistency issue [Recovering/Resolving]
  - Therapeutic response delayed [Recovered/Resolved]
